FAERS Safety Report 20623024 (Version 3)
Quarter: 2022Q3

REPORT INFORMATION
  Report Type: Report from Study
  Country: EG (occurrence: EG)
  Receive Date: 20220322
  Receipt Date: 20220628
  Transmission Date: 20221026
  Serious: Yes (Other)
  Sender: FDA-Public Use
  Company Number: EG-NOVARTISPH-NVSC2022EG062658

PATIENT
  Age: 39 Year
  Sex: Male

DRUGS (9)
  1. AFINITOR [Suspect]
     Active Substance: EVEROLIMUS
     Indication: Renal cancer metastatic
     Dosage: 5 MG (PATIENT AT FIRST AFINITOR 5 MG TWICE AT ONCE THEN DESCALATED THE DOSE IN 2019 TO 5MG ONCE PER
     Route: 048
     Dates: start: 201606, end: 202110
  2. AFINITOR [Suspect]
     Active Substance: EVEROLIMUS
     Dosage: 5 MG, QD
     Route: 048
     Dates: start: 202202
  3. URSOPLUS [Concomitant]
     Indication: Liver disorder
     Dosage: UNK, TID
     Route: 065
     Dates: start: 20220205
  4. FRESUBIN [Concomitant]
     Active Substance: AMINO ACIDS\DEXTROSE\ELECTROLYTES NOS\SOYBEAN OIL\VITAMINS
     Indication: Liver disorder
     Dosage: UNK, TID (1 CUP IN HALF CUP OF WATER OR JUICE)
     Route: 065
     Dates: start: 20220205
  5. TRAMADOL [Concomitant]
     Active Substance: TRAMADOL
     Indication: Analgesic therapy
     Dosage: 100 MG, BID
     Route: 065
     Dates: start: 20220205
  6. LYRICA [Concomitant]
     Active Substance: PREGABALIN
     Indication: Analgesic therapy
     Dosage: UNK (150 MG TWICE PER DAY THEN DESCALATED TO 75 MG TWICE PER DAY THEN 75 MG ONCE PER DAY)
     Route: 065
     Dates: start: 20220205
  7. EXCEDRIN [Concomitant]
     Active Substance: ACETAMINOPHEN\ASPIRIN\CAFFEINE
     Indication: Product used for unknown indication
     Dosage: UNK
     Route: 065
  8. GAPTIN [Concomitant]
     Indication: Product used for unknown indication
     Dosage: UNK UNK, BID
     Route: 065
  9. INLYTA [Concomitant]
     Active Substance: AXITINIB
     Indication: Product used for unknown indication
     Dosage: UNK
     Route: 065
     Dates: start: 202110, end: 202202

REACTIONS (6)
  - Bone pain [Recovering/Resolving]
  - Hepatic pain [Recovering/Resolving]
  - General physical health deterioration [Recovering/Resolving]
  - Drug ineffective [Recovered/Resolved]
  - Jaundice [Recovering/Resolving]
  - Fatigue [Recovering/Resolving]

NARRATIVE: CASE EVENT DATE: 20211001
